FAERS Safety Report 25430614 (Version 2)
Quarter: 2025Q2

REPORT INFORMATION
  Report Type: Spontaneous
  Country: US (occurrence: US)
  Receive Date: 20250612
  Receipt Date: 20250627
  Transmission Date: 20250716
  Serious: Yes (Life-Threatening, Hospitalization)
  Sender: TEVA
  Company Number: US-TEVA-VS-3340273

PATIENT
  Sex: Male

DRUGS (7)
  1. EPINEPHRINE [Suspect]
     Active Substance: EPINEPHRINE
     Indication: Hypotension
     Route: 065
  2. LISINOPRIL [Interacting]
     Active Substance: LISINOPRIL
     Indication: Product used for unknown indication
     Route: 048
  3. PHENYLEPHRINE [Suspect]
     Active Substance: PHENYLEPHRINE
     Indication: Hypotension
     Route: 065
  4. VASOPRESSIN [Suspect]
     Active Substance: VASOPRESSIN
     Indication: Hypotension
     Route: 065
  5. AMLODIPINE [Interacting]
     Active Substance: AMLODIPINE BESYLATE
     Indication: Product used for unknown indication
     Route: 048
  6. NOREPINEPHRINE [Suspect]
     Active Substance: NOREPINEPHRINE
     Indication: Hypotension
     Route: 065
  7. DEVICE [Suspect]
     Active Substance: DEVICE

REACTIONS (10)
  - Hypotension [Recovering/Resolving]
  - Intentional overdose [Unknown]
  - Drug ineffective [Unknown]
  - Drug interaction [Unknown]
  - Distributive shock [Recovering/Resolving]
  - Toxicity to various agents [Recovering/Resolving]
  - Renal injury [Recovering/Resolving]
  - Agitation [Recovering/Resolving]
  - Tachycardia [Recovering/Resolving]
  - Leukocytosis [Recovering/Resolving]
